FAERS Safety Report 10022457 (Version 5)
Quarter: 2016Q3

REPORT INFORMATION
  Report Type: Spontaneous
  Country: US (occurrence: US)
  Receive Date: 20140319
  Receipt Date: 20160916
  Transmission Date: 20161108
  Serious: Yes (Hospitalization, Disabling, Other)
  Sender: FDA-Public Use
  Company Number: US-009507513-1403USA005981

PATIENT
  Sex: Female

DRUGS (5)
  1. HORMONES (UNSPECIFIED) [Concomitant]
     Active Substance: UNSPECIFIED INGREDIENT
     Dosage: UNK
     Route: 065
     Dates: start: 1992, end: 2010
  2. FOSAMAX [Suspect]
     Active Substance: ALENDRONATE SODIUM
     Indication: OSTEOPOROSIS PROPHYLAXIS
     Dosage: UNK UNK, UNKNOWN
     Route: 048
     Dates: start: 199509, end: 200802
  3. FOSAMAX [Suspect]
     Active Substance: ALENDRONATE SODIUM
     Dosage: 70 MG, QW
     Route: 048
     Dates: end: 2007
  4. CORTICOSTEROIDS (UNSPECIFIED) [Concomitant]
     Active Substance: UNSPECIFIED INGREDIENT
     Dosage: UNK
     Route: 065
     Dates: start: 1990, end: 2010
  5. ALENDRONATE SODIUM. [Suspect]
     Active Substance: ALENDRONATE SODIUM
     Indication: OSTEOPOROSIS PROPHYLAXIS
     Dosage: 70 MG, QW
     Route: 048
     Dates: start: 200802, end: 200901

REACTIONS (47)
  - Pain [Not Recovered/Not Resolved]
  - Spinal laminectomy [Unknown]
  - Hypersensitivity [Unknown]
  - Osteoporosis [Not Recovered/Not Resolved]
  - Anal fistula [Unknown]
  - Osteoarthritis [Unknown]
  - Arthropathy [Unknown]
  - Metabolic surgery [Unknown]
  - Asthma [Not Recovered/Not Resolved]
  - Fibromyalgia [Not Recovered/Not Resolved]
  - Tooth injury [Unknown]
  - Depression [Not Recovered/Not Resolved]
  - Hypokalaemia [Not Recovered/Not Resolved]
  - Electrocardiogram ST-T change [Unknown]
  - Hysterectomy [Unknown]
  - Anaemia [Unknown]
  - Aspartate aminotransferase increased [Unknown]
  - Tooth extraction [Unknown]
  - Spinal column injury [Unknown]
  - Lumbar vertebral fracture [Unknown]
  - Tooth infection [Unknown]
  - Aortic aneurysm [Not Recovered/Not Resolved]
  - Anxiety [Unknown]
  - Appendicectomy [Unknown]
  - Intervertebral disc protrusion [Unknown]
  - Blood alkaline phosphatase increased [Unknown]
  - Wrist fracture [Unknown]
  - Femur fracture [Unknown]
  - Hypertension [Unknown]
  - Lumbar spinal stenosis [Unknown]
  - Liver function test increased [Unknown]
  - Cholecystectomy [Unknown]
  - Intervertebral disc protrusion [Unknown]
  - Diabetes mellitus [Not Recovered/Not Resolved]
  - Inflammatory bowel disease [Unknown]
  - Crohn^s disease [Unknown]
  - Abscess intestinal [Unknown]
  - Synovitis [Unknown]
  - Alanine aminotransferase increased [Unknown]
  - Gastrooesophageal reflux disease [Unknown]
  - Spinal column injury [Unknown]
  - Artificial crown procedure [Unknown]
  - Intervertebral disc degeneration [Unknown]
  - Bursitis [Unknown]
  - Limb injury [Unknown]
  - Arthralgia [Unknown]
  - Gastritis [Unknown]

NARRATIVE: CASE EVENT DATE: 1996
